FAERS Safety Report 22152027 (Version 1)
Quarter: 2023Q1

REPORT INFORMATION
  Report Type: Spontaneous
  Country: HR (occurrence: HR)
  Receive Date: 20230329
  Receipt Date: 20230329
  Transmission Date: 20230418
  Serious: Yes (Other)
  Sender: FDA-Public Use
  Company Number: HR-JNJFOC-20230361875

PATIENT
  Age: 70 Year
  Sex: Male

DRUGS (1)
  1. IMBRUVICA [Suspect]
     Active Substance: IBRUTINIB
     Indication: Chronic lymphocytic leukaemia
     Route: 048
     Dates: start: 202211

REACTIONS (7)
  - Thrombocytopenia [Unknown]
  - Splenomegaly [Unknown]
  - Abdominal lymphadenopathy [Unknown]
  - Abdominal distension [Unknown]
  - Asthenia [Unknown]
  - Anaemia [Unknown]
  - Hepatomegaly [Unknown]
